FAERS Safety Report 15228378 (Version 1)
Quarter: 2018Q3

REPORT INFORMATION
  Report Type: Spontaneous
  Country: BR (occurrence: BR)
  Receive Date: 20180801
  Receipt Date: 20180801
  Transmission Date: 20181010
  Serious: Yes (Other)
  Sender: FDA-Public Use
  Company Number: BR-ROCHE-2162972

PATIENT
  Sex: Male

DRUGS (2)
  1. RIVOTRIL [Suspect]
     Active Substance: CLONAZEPAM
     Indication: INSOMNIA
     Dosage: 4 TABLETS
     Route: 048
  2. DORMONID (ORAL) [Suspect]
     Active Substance: MIDAZOLAM HYDROCHLORIDE
     Indication: INSOMNIA
     Route: 048
     Dates: start: 1989

REACTIONS (5)
  - Off label use [Unknown]
  - Meniscus injury [Unknown]
  - Intentional product use issue [Unknown]
  - Haemorrhoids [Unknown]
  - Product packaging quantity issue [Unknown]
